FAERS Safety Report 11158909 (Version 1)
Quarter: 2015Q2

REPORT INFORMATION
  Report Type: Report from Study
  Country: ES (occurrence: ES)
  Receive Date: 20150603
  Receipt Date: 20150603
  Transmission Date: 20150821
  Serious: Yes (Death, Other)
  Sender: FDA-Public Use
  Company Number: ES-BAYER-2015-262433

PATIENT
  Age: 79 Year
  Sex: Female

DRUGS (2)
  1. REGORAFENIB [Suspect]
     Active Substance: REGORAFENIB
     Indication: COLORECTAL CANCER METASTATIC
     Dosage: 40 MG, BID
     Route: 048
     Dates: start: 20131003, end: 20150507
  2. REGORAFENIB [Suspect]
     Active Substance: REGORAFENIB
     Indication: COLORECTAL CANCER METASTATIC
     Dosage: 120MG DAILY
     Route: 048

REACTIONS (2)
  - Cardiomegaly [Fatal]
  - Acute hepatic failure [None]

NARRATIVE: CASE EVENT DATE: 20150512
